FAERS Safety Report 8983960 (Version 1)
Quarter: 2012Q4

REPORT INFORMATION
  Report Type: Spontaneous
  Country: US (occurrence: None)
  Receive Date: 20121218
  Receipt Date: 20121218
  Transmission Date: 20130627
  Serious: Yes (Other)
  Sender: FDA-Public Use
  Company Number: None

PATIENT
  Age: 71 Year
  Sex: Female
  Weight: 45.36 kg

DRUGS (1)
  1. CYCLOSPORINE [Suspect]
     Indication: SKIN DISORDER
     Dates: start: 20121121

REACTIONS (8)
  - Pyrexia [None]
  - Rash [None]
  - Dizziness [None]
  - Swollen tongue [None]
  - Face oedema [None]
  - Inflammation [None]
  - Dysphonia [None]
  - Pharyngeal oedema [None]
